FAERS Safety Report 6671509-5 (Version None)
Quarter: 2010Q2

REPORT INFORMATION
  Report Type: 
  Country: None (occurrence: None)
  Receive Date: 20100407
  Receipt Date: 20100401
  Transmission Date: 20101027
  Serious: Yes (Death)
  Sender: FDA-Public Use
  Company Number: US-CELGENEUS-163-50794-10030099

PATIENT
  Sex: Male
  Weight: 85.806 kg

DRUGS (1)
  1. VIDAZA [Suspect]
     Route: 058
     Dates: start: 20100208, end: 20100214

REACTIONS (2)
  - MYOCARDIAL INFARCTION [None]
  - NAUSEA [None]
